FAERS Safety Report 18078204 (Version 1)
Quarter: 2020Q3

REPORT INFORMATION
  Report Type: Report from Study
  Country: MX (occurrence: MX)
  Receive Date: 20200727
  Receipt Date: 20200727
  Transmission Date: 20201103
  Serious: Yes (Other)
  Sender: FDA-Public Use
  Company Number: NVSC2020MX201215

PATIENT
  Age: 43 Year
  Sex: Male
  Weight: 118 kg

DRUGS (4)
  1. MOXIFLOXACIN. [Concomitant]
     Active Substance: MOXIFLOXACIN
     Indication: COVID-19
     Dosage: 400 MG, QD
     Route: 048
     Dates: start: 20200616
  2. GALVUS MET [Suspect]
     Active Substance: METFORMIN HYDROCHLORIDE\VILDAGLIPTIN
     Indication: DIABETES MELLITUS
     Dosage: 1 DF, BID
     Route: 048
     Dates: start: 20200623
  3. DICLOFENAC [Concomitant]
     Active Substance: DICLOFENAC
     Indication: PULMONARY PAIN
     Dosage: 2 DF, QD
     Route: 048
     Dates: start: 20200616
  4. DEXAMETHASONE. [Concomitant]
     Active Substance: DEXAMETHASONE
     Indication: LUNG DISORDER
     Dosage: 2 DF, QD
     Route: 065
     Dates: start: 20200616

REACTIONS (2)
  - Bronchospasm [Not Recovered/Not Resolved]
  - Pneumonitis [Unknown]

NARRATIVE: CASE EVENT DATE: 20200704
